FAERS Safety Report 4875770-9 (Version None)
Quarter: 2006Q1

REPORT INFORMATION
  Report Type: 
  Country: None (occurrence: None)
  Receive Date: 20060109
  Receipt Date: 20051230
  Transmission Date: 20060701
  Serious: Yes (Death)
  Sender: FDA-Public Use
  Company Number: US-ABBOTT-06P-163-0321019-00

PATIENT
  Age: 46 Year
  Sex: Male

DRUGS (2)
  1. VICODIN ES [Suspect]
     Indication: DRUG USE FOR UNKNOWN INDICATION
     Route: 048
  2. OLANZAPINE [Suspect]
     Indication: DRUG USE FOR UNKNOWN INDICATION

REACTIONS (2)
  - COMPLETED SUICIDE [None]
  - OVERDOSE [None]
